FAERS Safety Report 4482350-6 (Version None)
Quarter: 2004Q4

REPORT INFORMATION
  Report Type: 
  Country: None (occurrence: None)
  Receive Date: 20041022
  Receipt Date: 20041013
  Transmission Date: 20050328
  Serious: Yes (Other)
  Sender: FDA-Public Use
  Company Number: JP-ROCHE-383407

PATIENT
  Age: 51 Year
  Sex: Female
  Weight: 57 kg

DRUGS (13)
  1. MYCOPHENOLATE MOFETIL [Suspect]
     Route: 048
     Dates: start: 20030325, end: 20040219
  2. MYCOPHENOLATE MOFETIL [Suspect]
     Route: 048
     Dates: start: 20040220
  3. NEORAL [Suspect]
     Route: 048
     Dates: start: 20030325, end: 20031225
  4. NEORAL [Suspect]
     Route: 048
     Dates: start: 20031226, end: 20040415
  5. NEORAL [Suspect]
     Route: 048
     Dates: start: 20040416
  6. PREDONINE [Suspect]
     Route: 048
     Dates: start: 20030325, end: 20040122
  7. PREDONINE [Suspect]
     Route: 048
     Dates: start: 20040123
  8. INDERAL [Concomitant]
     Route: 048
     Dates: start: 20030305, end: 20030407
  9. MAGNESIUM OXIDE [Concomitant]
     Route: 048
     Dates: start: 20030325, end: 20030407
  10. DIGOXIN [Concomitant]
     Route: 048
     Dates: start: 20030325, end: 20030407
  11. DILTIAZEM HYDROCHLORIDE [Concomitant]
     Route: 048
     Dates: start: 20030325, end: 20030407
  12. GASTER [Concomitant]
     Route: 048
     Dates: start: 20030325, end: 20030407
  13. LASIX [Concomitant]
     Route: 048
     Dates: start: 20030325, end: 20030325

REACTIONS (2)
  - CEREBRAL INFARCTION [None]
  - DIABETES MELLITUS [None]
